FAERS Safety Report 10512765 (Version 3)
Quarter: 2014Q4

REPORT INFORMATION
  Report Type: Report from Study
  Country: AU (occurrence: AU)
  Receive Date: 20141013
  Receipt Date: 20141020
  Transmission Date: 20150528
  Serious: Yes (Hospitalization)
  Sender: FDA-Public Use
  Company Number: AU-ROCHE-1380715

PATIENT
  Age: 67 Year
  Sex: Female

DRUGS (1)
  1. ACTEMRA [Suspect]
     Active Substance: TOCILIZUMAB
     Indication: RHEUMATOID ARTHRITIS
     Route: 042
     Dates: start: 20111020

REACTIONS (4)
  - White blood cell count decreased [Recovered/Resolved]
  - Transient ischaemic attack [Recovered/Resolved]
  - Blood cholesterol increased [Unknown]
  - Thyroid neoplasm [Unknown]

NARRATIVE: CASE EVENT DATE: 20140407
